FAERS Safety Report 7952205-0 (Version None)
Quarter: 2011Q4

REPORT INFORMATION
  Report Type: 
  Country: None (occurrence: None)
  Receive Date: 20111201
  Receipt Date: 20111031
  Transmission Date: 20120403
  Serious: No
  Sender: FDA-Public Use
  Company Number: US-BAYER-2011-106682

PATIENT
  Age: 57 Year
  Sex: Female
  Weight: 85 kg

DRUGS (7)
  1. HYDROCHLOROTHIAZIDE [Concomitant]
  2. NAPROXEN (ALEVE) [Suspect]
     Dosage: 1 DF, QD
     Route: 048
     Dates: start: 20111031, end: 20111031
  3. BLACK COHOSH [Concomitant]
  4. ALEVE (CAPLET) [Suspect]
     Dosage: 1 DF, QD
     Route: 048
     Dates: start: 20110101, end: 20110101
  5. ATIVAN [Concomitant]
  6. SOY ISOFLAVONES [Concomitant]
  7. ASCORBIC ACID [Concomitant]

REACTIONS (1)
  - ABDOMINAL DISCOMFORT [None]
